FAERS Safety Report 9168488 (Version 2)
Quarter: 2013Q3

REPORT INFORMATION
  Report Type: Report from Study
  Country: US (occurrence: US)
  Receive Date: 20130318
  Receipt Date: 20130809
  Transmission Date: 20140515
  Serious: Yes (Other)
  Sender: FDA-Public Use
  Company Number: US-PFIZER INC-2013084493

PATIENT
  Age: 40 Year
  Sex: Female

DRUGS (2)
  1. SOLU-MEDROL [Suspect]
     Indication: OPTIC NEURITIS
     Dosage: UNK
  2. COPAXONE [Interacting]
     Indication: MULTIPLE SCLEROSIS
     Dosage: UNK
     Dates: start: 20120322, end: 20121215

REACTIONS (2)
  - Drug interaction [Unknown]
  - Chest discomfort [Unknown]
